FAERS Safety Report 24449841 (Version 1)
Quarter: 2024Q4

REPORT INFORMATION
  Report Type: Spontaneous
  Country: US (occurrence: US)
  Receive Date: 20241017
  Receipt Date: 20241017
  Transmission Date: 20250115
  Serious: Yes (Hospitalization)
  Sender: MYLAN
  Company Number: US-MYLANLABS-2024M1093905

PATIENT
  Age: 33 Year
  Sex: Female

DRUGS (3)
  1. VERAPAMIL [Suspect]
     Active Substance: VERAPAMIL HYDROCHLORIDE
     Indication: Vasospasm
     Dosage: UNK
     Route: 013
  2. NICARDIPINE [Suspect]
     Active Substance: NICARDIPINE
     Indication: Vasospasm
     Dosage: UNK, Q8H {(INTRATHECAL NICARDIPINE VIA LUMBAR DRAIN (LD) EVERY 8H}
     Route: 037
  3. SALINE [Concomitant]
     Active Substance: SODIUM CHLORIDE
     Indication: Irrigation therapy
     Dosage: 2CC
     Route: 065

REACTIONS (2)
  - Drug ineffective [Unknown]
  - Off label use [Unknown]
